FAERS Safety Report 6768393-8 (Version None)
Quarter: 2010Q2

REPORT INFORMATION
  Report Type: 
  Country: None (occurrence: None)
  Receive Date: 20100614
  Receipt Date: 20100604
  Transmission Date: 20101027
  Serious: Yes (Other)
  Sender: FDA-Public Use
  Company Number: US-PFIZER INC-2010071081

PATIENT
  Sex: Female

DRUGS (1)
  1. OGEN [Suspect]

REACTIONS (2)
  - ANXIETY DISORDER [None]
  - PANIC DISORDER [None]
